FAERS Safety Report 6085922-0 (Version None)
Quarter: 2009Q1

REPORT INFORMATION
  Report Type: 
  Country: None (occurrence: None)
  Receive Date: 20090217
  Receipt Date: 20080219
  Transmission Date: 20090719
  Serious: Yes (Other)
  Sender: FDA-Public Use
  Company Number: MC200800100

PATIENT
  Age: 60 Year
  Sex: Female
  Weight: 84.4 kg

DRUGS (1)
  1. ANGIOMAX [Suspect]
     Indication: CATHETERISATION CARDIAC
     Dosage: 4 ML, HR, INTRAVENOUS
     Route: 042
     Dates: start: 20080218, end: 20080218

REACTIONS (3)
  - CATHETER SITE HAEMATOMA [None]
  - CATHETER SITE HAEMORRHAGE [None]
  - UNDERDOSE [None]
